FAERS Safety Report 24145939 (Version 1)
Quarter: 2024Q3

REPORT INFORMATION
  Report Type: Spontaneous
  Country: US (occurrence: US)
  Receive Date: 20240729
  Receipt Date: 20240729
  Transmission Date: 20241016
  Serious: No
  Sender: GRIFOLS
  Company Number: US-IGSA-BIG0024963

PATIENT
  Age: 72 Year
  Sex: Female

DRUGS (2)
  1. VISTASEAL [Suspect]
     Active Substance: FIBRINOGEN HUMAN\HUMAN THROMBIN
     Indication: Vascular graft
     Dosage: 10 MILLILITER, TOTAL
     Route: 061
     Dates: start: 20230720, end: 20230720
  2. THROMBIN [Concomitant]
     Active Substance: THROMBIN
     Dosage: UNK
     Dates: start: 20230720, end: 20230720

REACTIONS (1)
  - Drug ineffective [Recovered/Resolved]

NARRATIVE: CASE EVENT DATE: 20230720
